FAERS Safety Report 17397939 (Version 2)
Quarter: 2020Q2

REPORT INFORMATION
  Report Type: Spontaneous
  Country: NO (occurrence: NO)
  Receive Date: 20200210
  Receipt Date: 20200428
  Transmission Date: 20200713
  Serious: Yes (Death)
  Sender: FDA-Public Use
  Company Number: NO-MYLANLABS-2020M1014010

PATIENT
  Age: 33 Year
  Sex: Male

DRUGS (12)
  1. KETORAX [Suspect]
     Active Substance: KETOBEMIDONE HYDROCHLORIDE
     Indication: PAIN
     Dosage: UNK UNK, PRN
     Dates: start: 2011
  2. STESOLID [Suspect]
     Active Substance: DIAZEPAM
     Dosage: UNK, PRN (INCREASED DOSE, AS NEEDED)
     Dates: start: 201012
  3. VIVAL [Suspect]
     Active Substance: DIAZEPAM
     Indication: STRESS
     Dosage: UNK
  4. METHADONE [Suspect]
     Active Substance: METHADONE HYDROCHLORIDE
     Indication: PRODUCT USED FOR UNKNOWN INDICATION
     Dosage: UNK
  5. LIDOCAINE. [Suspect]
     Active Substance: LIDOCAINE
     Dosage: UNK UNK, PRN (INCREASED DOSE, AS NEEDED)
     Dates: start: 201012
  6. LYRICA [Suspect]
     Active Substance: PREGABALIN
     Indication: PAIN
     Dosage: UNK
  7. LIDOCAINE. [Suspect]
     Active Substance: LIDOCAINE
     Indication: PAIN
     Dosage: UNK UNK, PRN
     Dates: start: 20101118
  8. MORPHINE [Suspect]
     Active Substance: MORPHINE
     Indication: PAIN
     Dosage: UNK
  9. STESOLID [Suspect]
     Active Substance: DIAZEPAM
     Indication: PAIN
     Dosage: UNK
     Dates: start: 20101118
  10. KETAMINE HCL [Suspect]
     Active Substance: KETAMINE HYDROCHLORIDE
     Indication: PAIN
     Dosage: UNK UNK, PRN
     Dates: start: 20101118
  11. MIDAZOLAM. [Suspect]
     Active Substance: MIDAZOLAM
     Indication: PAIN
     Dosage: UNK UNK, PRN (DOSE INCREASING, AS NEEDED)
     Dates: start: 201101
  12. KETAMINE HCL [Suspect]
     Active Substance: KETAMINE HYDROCHLORIDE
     Dosage: UNK, PRN (INCREASED DOSE AS NEEDED)
     Dates: start: 201012

REACTIONS (10)
  - Somatic symptom disorder [Unknown]
  - Drug ineffective [Fatal]
  - Drug dependence [Fatal]
  - Decreased appetite [Unknown]
  - Loss of personal independence in daily activities [Unknown]
  - Toxicity to various agents [Fatal]
  - Weight decreased [Unknown]
  - Product use in unapproved indication [Unknown]
  - Sleep disorder [Unknown]
  - Off label use [Unknown]

NARRATIVE: CASE EVENT DATE: 20101118
